FAERS Safety Report 23958260 (Version 1)
Quarter: 2024Q2

REPORT INFORMATION
  Report Type: Spontaneous
  Country: US (occurrence: None)
  Receive Date: 20240609
  Receipt Date: 20240609
  Transmission Date: 20240715
  Serious: No
  Sender: FDA-Public Use
  Company Number: None

PATIENT
  Age: 67 Year
  Sex: Female
  Weight: 60.98 kg

DRUGS (6)
  1. ESTRADIOL [Suspect]
     Active Substance: ESTRADIOL
     Indication: Vulvovaginal pain
     Dosage: OTHER STRENGTH : 1.5.OZ;?OTHER QUANTITY : 1 APPLICATOR;?FREQUENCY : 3 TIMES A WEEK;?
     Route: 067
     Dates: start: 20240607, end: 20240608
  2. ASPIRIN [Concomitant]
     Active Substance: ASPIRIN
  3. VITAMINS [Concomitant]
     Active Substance: VITAMINS
  4. CALCIUM\VITAMIN D [Concomitant]
     Active Substance: CALCIUM\VITAMIN D
  5. ZYRTEC [Concomitant]
     Active Substance: CETIRIZINE HYDROCHLORIDE
  6. ECHINACEA [Concomitant]
     Active Substance: ECHINACEA, UNSPECIFIED

REACTIONS (7)
  - Muscle spasms [None]
  - Diarrhoea [None]
  - Cold sweat [None]
  - Dizziness [None]
  - Nausea [None]
  - Feeling abnormal [None]
  - Headache [None]

NARRATIVE: CASE EVENT DATE: 20240608
